FAERS Safety Report 17329430 (Version 1)
Quarter: 2020Q1

REPORT INFORMATION
  Report Type: Spontaneous
  Country: US (occurrence: US)
  Receive Date: 20200127
  Receipt Date: 20200127
  Transmission Date: 20200409
  Serious: Yes (Hospitalization, Other)
  Sender: FDA-Public Use
  Company Number: None

PATIENT
  Age: 75 Year
  Sex: Male
  Weight: 91.8 kg

DRUGS (9)
  1. GABAPENTIN. [Concomitant]
     Active Substance: GABAPENTIN
  2. CLOPIDOGREL [Suspect]
     Active Substance: CLOPIDOGREL BISULFATE
     Indication: PRODUCT USED FOR UNKNOWN INDICATION
     Dosage: ?          QUANTITY:1 TABLET(S);?
     Route: 048
     Dates: start: 20190131, end: 20200123
  3. BUSPERONE HCL [Concomitant]
  4. MIRTAZAPINE. [Concomitant]
     Active Substance: MIRTAZAPINE
  5. COLCHICINE. [Concomitant]
     Active Substance: COLCHICINE
  6. DULOXETINE. [Concomitant]
     Active Substance: DULOXETINE
  7. FUROSEMIDE. [Concomitant]
     Active Substance: FUROSEMIDE
  8. CANDESARTAN. [Concomitant]
     Active Substance: CANDESARTAN
  9. MULTIVITAMIN [Concomitant]
     Active Substance: VITAMINS

REACTIONS (3)
  - Dyspnoea [None]
  - Wheezing [None]
  - Asthma [None]

NARRATIVE: CASE EVENT DATE: 20191231
